FAERS Safety Report 9156860 (Version 1)
Quarter: 2013Q1

REPORT INFORMATION
  Report Type: Spontaneous
  Country: DK (occurrence: None)
  Receive Date: 20130206
  Receipt Date: 20130206
  Transmission Date: 20140127
  Serious: Yes (Hospitalization)
  Sender: FDA-Public Use
  Company Number: 2013MA000916

PATIENT
  Age: 44 Year
  Sex: Female

DRUGS (1)
  1. DICLOFENAC [Suspect]
     Dates: start: 20121001

REACTIONS (7)
  - Hypotension [None]
  - Anaphylactic reaction [None]
  - Erythema [None]
  - Mechanical urticaria [None]
  - Tremor [None]
  - Hypotension [None]
  - Depressed level of consciousness [None]
